FAERS Safety Report 4796805-8 (Version None)
Quarter: 2005Q3

REPORT INFORMATION
  Report Type: 
  Country: None (occurrence: None)
  Receive Date: 20050916
  Receipt Date: 20050511
  Transmission Date: 20060218
  Serious: Yes (Other)
  Sender: FDA-Public Use
  Company Number: US-JNJFOC-20050503709

PATIENT
  Age: 24 Year
  Sex: Female

DRUGS (4)
  1. TOPAMAX [Suspect]
     Indication: MIGRAINE
     Dosage: ORAL
     Route: 048
     Dates: start: 20050401, end: 20050401
  2. ULTRAM [Suspect]
     Dosage: ORAL
     Route: 048
  3. ALBUTEROL [Concomitant]
  4. CORGARD (NADOLOL) TABLETS [Concomitant]

REACTIONS (2)
  - CONVULSION [None]
  - HALLUCINATION [None]
